FAERS Safety Report 15564798 (Version 1)
Quarter: 2018Q4

REPORT INFORMATION
  Report Type: Spontaneous
  Country: US (occurrence: US)
  Receive Date: 20181030
  Receipt Date: 20181030
  Transmission Date: 20190205
  Serious: Yes (Other)
  Sender: FDA-Public Use
  Company Number: None

PATIENT
  Age: 17 Year
  Sex: Female
  Weight: 60.75 kg

DRUGS (1)
  1. DEPO-PROVERA [Suspect]
     Active Substance: MEDROXYPROGESTERONE ACETATE
     Indication: CONTRACEPTION
     Dosage: ?          OTHER FREQUENCY:90 DAYS;?
     Route: 030
     Dates: start: 20070101, end: 20140901

REACTIONS (3)
  - Sleep terror [None]
  - Nightmare [None]
  - Abnormal dreams [None]

NARRATIVE: CASE EVENT DATE: 20070101
